FAERS Safety Report 17798467 (Version 1)
Quarter: 2020Q2

REPORT INFORMATION
  Report Type: Spontaneous
  Country: US (occurrence: US)
  Receive Date: 20200518
  Receipt Date: 20200518
  Transmission Date: 20200714
  Serious: Yes (Hospitalization)
  Sender: FDA-Public Use
  Company Number: US-PFIZER INC-2020186433

PATIENT
  Age: 66 Year
  Sex: Male

DRUGS (17)
  1. FLUDARABINE PHOSPHATE. [Suspect]
     Active Substance: FLUDARABINE PHOSPHATE
     Indication: IMMUNOSUPPRESSANT DRUG THERAPY
     Dosage: UNK, CYCLIC (4 CYCLES)
     Dates: start: 20030704
  2. CYCLOPHOSPHAMIDE. [Suspect]
     Active Substance: CYCLOPHOSPHAMIDE
     Indication: LYMPHADENOPATHY
     Dosage: UNK, CYCLIC (6 CYCLES)
     Dates: start: 200810, end: 200902
  3. PEGFILGRASTIM [Concomitant]
     Active Substance: PEGFILGRASTIM
     Indication: PROPHYLAXIS
     Dosage: 6 MG
     Route: 058
  4. TRIMETHOPRIM SULFAMETHOXAZOLE [Concomitant]
     Active Substance: SULFAMETHOXAZOLE\TRIMETHOPRIM
     Dosage: UNK  (3 WEEKS OF HIGH DOSE (20 MG/KG TMP EACH DAY)
     Route: 042
  5. VALACYCLOVIR HCL [Concomitant]
     Active Substance: VALACYCLOVIR HYDROCHLORIDE
     Indication: INFECTION PROPHYLAXIS
     Dosage: 500 MG, 2X/DAY
  6. FLUDARABINE PHOSPHATE. [Suspect]
     Active Substance: FLUDARABINE PHOSPHATE
     Indication: LYMPHOCYTOSIS
     Dosage: UNK, CYCLIC
     Dates: start: 200412, end: 200504
  7. RITUXIMAB. [Suspect]
     Active Substance: RITUXIMAB
     Indication: IMMUNOSUPPRESSANT DRUG THERAPY
     Dosage: UNK, CYCLIC (4 CYCLES)
     Dates: start: 20030704
  8. FLUDARABINE PHOSPHATE. [Suspect]
     Active Substance: FLUDARABINE PHOSPHATE
     Indication: CHRONIC LYMPHOCYTIC LEUKAEMIA
  9. TRIMETHOPRIM SULFAMETHOXAZOLE [Concomitant]
     Active Substance: SULFAMETHOXAZOLE\TRIMETHOPRIM
     Indication: INFECTION PROPHYLAXIS
     Dosage: UNK, WEEKLY (DS TABLET 3 TIMES PER WEEK)
  10. FLUDARABINE PHOSPHATE. [Suspect]
     Active Substance: FLUDARABINE PHOSPHATE
     Indication: LYMPHADENOPATHY
     Dosage: UNK, CYCLIC (6 CYCLES)
     Dates: start: 200810, end: 200902
  11. CYCLOPHOSPHAMIDE. [Suspect]
     Active Substance: CYCLOPHOSPHAMIDE
     Indication: IMMUNOSUPPRESSANT DRUG THERAPY
     Dosage: UNK, CYCLIC
  12. RITUXIMAB. [Suspect]
     Active Substance: RITUXIMAB
     Indication: LYMPHOCYTOSIS
     Dosage: UNK, CYCLIC (6 CYCLES)
     Dates: start: 200412, end: 200504
  13. CYCLOPHOSPHAMIDE. [Suspect]
     Active Substance: CYCLOPHOSPHAMIDE
     Indication: LYMPHOCYTOSIS
     Dosage: UNK, CYCLIC (6 CYCLES)
     Dates: start: 200412, end: 200504
  14. CYCLOPHOSPHAMIDE. [Suspect]
     Active Substance: CYCLOPHOSPHAMIDE
     Indication: CHRONIC LYMPHOCYTIC LEUKAEMIA
  15. RITUXIMAB. [Suspect]
     Active Substance: RITUXIMAB
     Indication: CHRONIC LYMPHOCYTIC LEUKAEMIA
  16. RITUXIMAB. [Suspect]
     Active Substance: RITUXIMAB
     Indication: LYMPHADENOPATHY
     Dosage: UNK, CYCLIC (6 CYCLES)
     Dates: start: 200810, end: 200902
  17. PREDNISONE. [Concomitant]
     Active Substance: PREDNISONE
     Dosage: UNK
     Dates: start: 200909

REACTIONS (1)
  - Human polyomavirus infection [Unknown]
